FAERS Safety Report 5646527-6 (Version None)
Quarter: 2008Q1

REPORT INFORMATION
  Report Type: 
  Country: None (occurrence: None)
  Receive Date: 20080303
  Receipt Date: 20080219
  Transmission Date: 20080703
  Serious: Yes (Other)
  Sender: FDA-Public Use
  Company Number: PHEH2007US15924

PATIENT
  Age: 52 Year
  Sex: Female

DRUGS (4)
  1. ZELNORM [Suspect]
     Dosage: TWO 6 MG TABLETS
     Route: 048
     Dates: start: 20070315, end: 20070315
  2. PROMETHAZINE [Suspect]
     Dosage: 25 MG, UNK
     Dates: start: 20070315
  3. XIFAXAN [Suspect]
     Dosage: 200 MG, UNK
     Dates: start: 20070315
  4. GLYCOLAX [Suspect]
     Dates: start: 20070315

REACTIONS (3)
  - DYSPNOEA [None]
  - HYPERHIDROSIS [None]
  - PHARYNGEAL OEDEMA [None]
